FAERS Safety Report 20530436 (Version 2)
Quarter: 2022Q2

REPORT INFORMATION
  Report Type: Spontaneous
  Country: US (occurrence: US)
  Receive Date: 20220301
  Receipt Date: 20220407
  Transmission Date: 20220720
  Serious: No
  Sender: FDA-Public Use
  Company Number: US-GLAXOSMITHKLINE-US2022AMR034389

PATIENT
  Sex: Male

DRUGS (1)
  1. ALBUTEROL SULFATE [Suspect]
     Active Substance: ALBUTEROL SULFATE
     Indication: Product used for unknown indication
     Dosage: 1 PUFF(S)
     Route: 055

REACTIONS (5)
  - Wrong technique in device usage process [Unknown]
  - Underdose [Unknown]
  - Product storage error [Unknown]
  - Wrong technique in product usage process [Unknown]
  - Product complaint [Unknown]
